FAERS Safety Report 10146331 (Version 1)
Quarter: 2014Q2

REPORT INFORMATION
  Report Type: Report from Study
  Country: NO (occurrence: None)
  Receive Date: 20140429
  Receipt Date: 20140429
  Transmission Date: 20141212
  Serious: Yes (Hospitalization)
  Sender: FDA-Public Use
  Company Number: 2309571

PATIENT
  Age: 64 Year
  Sex: Female

DRUGS (2)
  1. EPIRUBICIN HYDROCHLORIDE [Suspect]
     Indication: BREAST CANCER
     Dosage: 1 WEEK
     Route: 042
     Dates: start: 20130311, end: 20130409
  2. PEGFILGRASTIM [Concomitant]

REACTIONS (2)
  - Pneumocystis jirovecii infection [None]
  - Pneumonitis [None]
